FAERS Safety Report 9730044 (Version 3)
Quarter: 2014Q2

REPORT INFORMATION
  Report Type: Report from Study
  Country: BR (occurrence: BR)
  Receive Date: 20131204
  Receipt Date: 20140415
  Transmission Date: 20141212
  Serious: Yes (Hospitalization)
  Sender: FDA-Public Use
  Company Number: BR-BIOMARINAP-BR-2013-102007

PATIENT
  Age: 43 Year
  Sex: Female

DRUGS (1)
  1. ALDURAZYME [Suspect]
     Indication: MUCOPOLYSACCHARIDOSIS I
     Dosage: 0.58 MG/KG, QW
     Dates: start: 20100514

REACTIONS (3)
  - Inguinal hernia [Recovering/Resolving]
  - Groin pain [Recovering/Resolving]
  - Vision blurred [Unknown]
